FAERS Safety Report 14214591 (Version 1)
Quarter: 2017Q4

REPORT INFORMATION
  Report Type: Spontaneous
  Country: US (occurrence: US)
  Receive Date: 20171122
  Receipt Date: 20171122
  Transmission Date: 20180321
  Serious: No
  Sender: FDA-Public Use
  Company Number: US-PFIZER INC-2017502024

PATIENT
  Age: 74 Year
  Sex: Female

DRUGS (5)
  1. SULFABENZAMIDE. [Suspect]
     Active Substance: SULFABENZAMIDE
     Dosage: UNK
  2. BIAXIN [Suspect]
     Active Substance: CLARITHROMYCIN
     Dosage: UNK
  3. ATORVASTATIN CALCIUM. [Suspect]
     Active Substance: ATORVASTATIN CALCIUM
     Dosage: UNK
  4. SEASONALE [Suspect]
     Active Substance: ETHINYL ESTRADIOL\LEVONORGESTREL
     Dosage: UNK
  5. SUPRAX [Suspect]
     Active Substance: CEFIXIME
     Dosage: UNK

REACTIONS (1)
  - Drug hypersensitivity [Unknown]
